FAERS Safety Report 19969549 (Version 1)
Quarter: 2021Q4

REPORT INFORMATION
  Report Type: Spontaneous
  Country: GR (occurrence: GR)
  Receive Date: 20211019
  Receipt Date: 20211019
  Transmission Date: 20220303
  Serious: Yes (Hospitalization, Other)
  Sender: FDA-Public Use
  Company Number: GR-AMGEN-GRCSP2021098100

PATIENT
  Age: 33 Year
  Sex: Male

DRUGS (1)
  1. ADALIMUMAB [Suspect]
     Active Substance: ADALIMUMAB
     Indication: Product used for unknown indication
     Dosage: UNK
     Route: 065

REACTIONS (7)
  - Fistula [Recovering/Resolving]
  - Inflammation [Recovered/Resolved]
  - Crohn^s disease [Unknown]
  - Cryptitis [Recovering/Resolving]
  - Mucosal hyperaemia [Recovering/Resolving]
  - Mucosal ulceration [Recovering/Resolving]
  - Arthritis enteropathic [Unknown]
